FAERS Safety Report 17485032 (Version 5)
Quarter: 2022Q3

REPORT INFORMATION
  Report Type: Spontaneous
  Country: GR (occurrence: GR)
  Receive Date: 20200302
  Receipt Date: 20220822
  Transmission Date: 20221026
  Serious: Yes (Hospitalization, Other)
  Sender: FDA-Public Use
  Company Number: GR-ROCHE-2528781

PATIENT
  Age: 60 Year
  Sex: Female
  Weight: 60 kg

DRUGS (121)
  1. ALBUMIN HUMAN [Suspect]
     Active Substance: ALBUMIN HUMAN
     Indication: Hypertension
     Dosage: 100 MILLIGRAM
     Route: 042
     Dates: start: 20200110, end: 20200113
  2. ALBUMIN HUMAN [Suspect]
     Active Substance: ALBUMIN HUMAN
     Indication: Diffuse large B-cell lymphoma
     Dosage: 50 MILLIGRAM
     Route: 042
     Dates: start: 20200110, end: 20200113
  3. ALBUMIN HUMAN [Suspect]
     Active Substance: ALBUMIN HUMAN
     Indication: Non-Hodgkin^s lymphoma
  4. ALBUMIN HUMAN [Suspect]
     Active Substance: ALBUMIN HUMAN
     Indication: Anaemia
  5. ALBUMIN HUMAN [Suspect]
     Active Substance: ALBUMIN HUMAN
     Indication: Leukopenia
  6. PREDNISOLONE [Suspect]
     Active Substance: PREDNISOLONE
     Indication: Product used for unknown indication
     Dosage: UNK
     Route: 065
     Dates: start: 20191113, end: 20191223
  7. RITUXIMAB [Suspect]
     Active Substance: RITUXIMAB
     Indication: Diffuse large B-cell lymphoma
     Dosage: UNK
     Route: 058
     Dates: start: 20190513, end: 20190625
  8. RITUXIMAB [Suspect]
     Active Substance: RITUXIMAB
     Indication: Non-Hodgkin^s lymphoma
     Dosage: UNK
     Route: 042
     Dates: start: 20190513, end: 20191013
  9. RITUXIMAB [Suspect]
     Active Substance: RITUXIMAB
     Dosage: UNK
     Route: 042
     Dates: start: 20191113, end: 20191223
  10. RITUXIMAB [Suspect]
     Active Substance: RITUXIMAB
     Dosage: 1400 MILLIGRAM
     Route: 058
     Dates: start: 20191113, end: 20191210
  11. CYTARABINE [Suspect]
     Active Substance: CYTARABINE
     Indication: Leukopenia
     Dosage: UNK UNK, UNKNOWN
     Route: 058
     Dates: start: 20190523, end: 20200117
  12. CYTARABINE [Suspect]
     Active Substance: CYTARABINE
     Indication: Hypertension
     Dosage: UNK
     Route: 065
  13. CYTARABINE [Suspect]
     Active Substance: CYTARABINE
     Indication: Anaemia
  14. CYTARABINE [Suspect]
     Active Substance: CYTARABINE
     Indication: Non-Hodgkin^s lymphoma
  15. CYTARABINE [Suspect]
     Active Substance: CYTARABINE
     Indication: Diffuse large B-cell lymphoma
  16. NORVASC [Suspect]
     Active Substance: AMLODIPINE BESYLATE
     Indication: Hypertension
     Dosage: 5 MILLIGRAM
     Route: 048
     Dates: start: 20190115, end: 20190116
  17. NORVASC [Suspect]
     Active Substance: AMLODIPINE BESYLATE
     Indication: Diffuse large B-cell lymphoma
     Dosage: 5 MILLIGRAM
     Route: 048
     Dates: start: 20190515, end: 20190516
  18. NORVASC [Suspect]
     Active Substance: AMLODIPINE BESYLATE
     Indication: Anaemia
     Dosage: UNK
     Route: 058
  19. NORVASC [Suspect]
     Active Substance: AMLODIPINE BESYLATE
     Indication: Non-Hodgkin^s lymphoma
  20. NORVASC [Suspect]
     Active Substance: AMLODIPINE BESYLATE
     Indication: Leukopenia
  21. SPIRONOLACTONE [Suspect]
     Active Substance: SPIRONOLACTONE
     Indication: Non-Hodgkin^s lymphoma
     Dosage: UNK
     Route: 042
  22. SPIRONOLACTONE [Suspect]
     Active Substance: SPIRONOLACTONE
     Dosage: 100 MILLIGRAM
     Route: 048
     Dates: start: 20200105, end: 20200112
  23. CYTARABINE [Suspect]
     Active Substance: CYTARABINE
     Indication: Non-Hodgkin^s lymphoma
     Dosage: 3 GRAM
     Route: 042
     Dates: start: 20191123, end: 20200113
  24. CYTARABINE [Suspect]
     Active Substance: CYTARABINE
     Indication: Leukopenia
     Dosage: UNK
     Route: 058
  25. CYTARABINE [Suspect]
     Active Substance: CYTARABINE
     Indication: Hypertension
  26. CYTARABINE [Suspect]
     Active Substance: CYTARABINE
     Indication: Anaemia
  27. CYTARABINE [Suspect]
     Active Substance: CYTARABINE
     Indication: Diffuse large B-cell lymphoma
  28. MABTHERA [Suspect]
     Active Substance: RITUXIMAB
     Indication: Non-Hodgkin^s lymphoma
     Dosage: 1400 MILLIGRAM
     Route: 058
     Dates: start: 20191113, end: 20191210
  29. MABTHERA [Suspect]
     Active Substance: RITUXIMAB
     Indication: Diffuse large B-cell lymphoma
     Dosage: 1400 MILLIGRAM
     Route: 058
     Dates: start: 20190625, end: 20191009
  30. MABTHERA [Suspect]
     Active Substance: RITUXIMAB
     Indication: Leukopenia
     Dosage: 650 MILLIGRAM
     Route: 042
     Dates: start: 20191222, end: 20200113
  31. MABTHERA [Suspect]
     Active Substance: RITUXIMAB
     Indication: Hypertension
  32. MABTHERA [Suspect]
     Active Substance: RITUXIMAB
     Indication: Anaemia
  33. VINCRISTINE [Suspect]
     Active Substance: VINCRISTINE
     Indication: Hypertension
     Route: 065
  34. VINCRISTINE [Suspect]
     Active Substance: VINCRISTINE
     Indication: Anaemia
  35. VINCRISTINE [Suspect]
     Active Substance: VINCRISTINE
     Indication: Leukopenia
  36. VINCRISTINE [Suspect]
     Active Substance: VINCRISTINE
     Indication: Diffuse large B-cell lymphoma
  37. VINCRISTINE [Suspect]
     Active Substance: VINCRISTINE
     Indication: Non-Hodgkin^s lymphoma
  38. CYCLOPHOSPHAMIDE\DOXORUBICIN\PREDNISONE\VINCRISTINE [Suspect]
     Active Substance: CYCLOPHOSPHAMIDE\DOXORUBICIN\PREDNISONE\VINCRISTINE
     Indication: Diffuse large B-cell lymphoma
     Dosage: UNK
     Route: 065
     Dates: start: 20190513, end: 20191013
  39. CYCLOPHOSPHAMIDE\DOXORUBICIN\PREDNISONE\VINCRISTINE [Suspect]
     Active Substance: CYCLOPHOSPHAMIDE\DOXORUBICIN\PREDNISONE\VINCRISTINE
     Dosage: UNK
     Route: 065
     Dates: start: 20190113, end: 20191013
  40. DOXORUBICIN HYDROCHLORIDE [Suspect]
     Active Substance: DOXORUBICIN HYDROCHLORIDE
     Indication: Non-Hodgkin^s lymphoma
     Dosage: 75 MILLIGRAM
     Route: 042
     Dates: start: 20190513, end: 20191009
  41. DOXORUBICIN HYDROCHLORIDE [Suspect]
     Active Substance: DOXORUBICIN HYDROCHLORIDE
     Indication: Diffuse large B-cell lymphoma
     Dosage: UNK
     Route: 058
  42. DOXORUBICIN HYDROCHLORIDE [Suspect]
     Active Substance: DOXORUBICIN HYDROCHLORIDE
     Indication: Leukopenia
  43. DOXORUBICIN HYDROCHLORIDE [Suspect]
     Active Substance: DOXORUBICIN HYDROCHLORIDE
     Indication: Anaemia
  44. DOXORUBICIN HYDROCHLORIDE [Suspect]
     Active Substance: DOXORUBICIN HYDROCHLORIDE
     Indication: Hypertension
  45. PREDNISONE [Suspect]
     Active Substance: PREDNISONE
     Indication: Leukopenia
     Dosage: UNK
     Route: 065
     Dates: start: 20190513, end: 20191013
  46. PREDNISONE [Suspect]
     Active Substance: PREDNISONE
     Indication: Diffuse large B-cell lymphoma
  47. PREDNISONE [Suspect]
     Active Substance: PREDNISONE
     Indication: Non-Hodgkin^s lymphoma
  48. PREDNISONE [Suspect]
     Active Substance: PREDNISONE
     Indication: Anaemia
  49. PREDNISONE [Suspect]
     Active Substance: PREDNISONE
     Indication: Hypertension
  50. LOSEC [Suspect]
     Active Substance: OMEPRAZOLE
     Indication: Diffuse large B-cell lymphoma
     Dosage: UNK
     Route: 042
     Dates: start: 20191223, end: 20200113
  51. LOSEC [Suspect]
     Active Substance: OMEPRAZOLE
     Indication: Non-Hodgkin^s lymphoma
  52. LOSEC [Suspect]
     Active Substance: OMEPRAZOLE
     Indication: Leukopenia
  53. LOSEC [Suspect]
     Active Substance: OMEPRAZOLE
     Indication: Hypertension
  54. LOSEC [Suspect]
     Active Substance: OMEPRAZOLE
     Indication: Anaemia
  55. OMEPRAZOLE [Suspect]
     Active Substance: OMEPRAZOLE
     Indication: Non-Hodgkin^s lymphoma
     Dosage: UNK, 1 CYCLES TWICE
     Route: 042
     Dates: start: 20191223, end: 20200113
  56. OMEPRAZOLE [Suspect]
     Active Substance: OMEPRAZOLE
     Indication: Leukopenia
     Dosage: UNK, 1 CYCLES TWICE
     Route: 048
     Dates: start: 20191223, end: 20200113
  57. OMEPRAZOLE [Suspect]
     Active Substance: OMEPRAZOLE
     Indication: Anaemia
  58. OMEPRAZOLE [Suspect]
     Active Substance: OMEPRAZOLE
     Indication: Hypertension
  59. ALDACTONE [Suspect]
     Active Substance: SPIRONOLACTONE
     Indication: Non-Hodgkin^s lymphoma
     Dosage: 100 MILLIGRAM
     Route: 065
     Dates: start: 20200105, end: 20200112
  60. CISPLATIN\CYTARABINE\ETOPOSIDE\METHYLPREDNISOLONE (ESHAP) [Suspect]
     Active Substance: CISPLATIN\CYTARABINE\ETOPOSIDE\METHYLPREDNISOLONE (ESHAP)
     Indication: Diffuse large B-cell lymphoma
     Dosage: UNK
     Route: 065
     Dates: start: 20191113, end: 20191223
  61. ERYTHROPOIETIN [Suspect]
     Active Substance: ERYTHROPOIETIN
     Indication: Anaemia
     Dosage: UNK
     Route: 058
     Dates: start: 20190523, end: 20200124
  62. LASIX [Suspect]
     Active Substance: FUROSEMIDE
     Indication: Anaemia
     Dosage: UNK
     Route: 042
     Dates: start: 20200110, end: 20200113
  63. LASIX [Suspect]
     Active Substance: FUROSEMIDE
     Indication: Hypertension
  64. LASIX [Suspect]
     Active Substance: FUROSEMIDE
     Indication: Non-Hodgkin^s lymphoma
  65. LASIX [Suspect]
     Active Substance: FUROSEMIDE
     Indication: Diffuse large B-cell lymphoma
  66. LASIX [Suspect]
     Active Substance: FUROSEMIDE
     Indication: Leukopenia
  67. VEPESID [Suspect]
     Active Substance: ETOPOSIDE
     Indication: Non-Hodgkin^s lymphoma
     Dosage: 90 MILLIGRAM
     Route: 042
     Dates: start: 20191119, end: 20200113
  68. VEPESID [Suspect]
     Active Substance: ETOPOSIDE
     Indication: Anaemia
     Dosage: UNK
     Route: 058
  69. VEPESID [Suspect]
     Active Substance: ETOPOSIDE
     Indication: Diffuse large B-cell lymphoma
  70. VEPESID [Suspect]
     Active Substance: ETOPOSIDE
     Indication: Leukopenia
  71. VEPESID [Suspect]
     Active Substance: ETOPOSIDE
     Indication: Hypertension
  72. CISPLATIN [Suspect]
     Active Substance: CISPLATIN
     Indication: Non-Hodgkin^s lymphoma
     Dosage: 38 MILLIGRAM
     Route: 042
     Dates: start: 20191119, end: 20200113
  73. CISPLATIN [Suspect]
     Active Substance: CISPLATIN
     Indication: Diffuse large B-cell lymphoma
     Dosage: UNK
     Route: 058
  74. CUBICIN [Suspect]
     Active Substance: DAPTOMYCIN
     Indication: Non-Hodgkin^s lymphoma
     Dosage: 350 MILLIGRAM
     Route: 042
     Dates: start: 20200102, end: 20200113
  75. CUBICIN [Suspect]
     Active Substance: DAPTOMYCIN
     Indication: Hypertension
  76. CUBICIN [Suspect]
     Active Substance: DAPTOMYCIN
     Indication: Leukopenia
  77. CUBICIN [Suspect]
     Active Substance: DAPTOMYCIN
     Indication: Anaemia
  78. CUBICIN [Suspect]
     Active Substance: DAPTOMYCIN
     Indication: Diffuse large B-cell lymphoma
  79. MEROPENEM [Suspect]
     Active Substance: MEROPENEM
     Indication: Non-Hodgkin^s lymphoma
     Dosage: 2 GRAM
     Route: 042
     Dates: start: 20200103, end: 20200113
  80. CHLORPHENIRAMINE MALEATE [Suspect]
     Active Substance: CHLORPHENIRAMINE MALEATE
     Indication: Non-Hodgkin^s lymphoma
     Dosage: UNK
     Route: 048
     Dates: start: 20200110, end: 20200112
  81. CHLORPHENIRAMINE MALEATE [Suspect]
     Active Substance: CHLORPHENIRAMINE MALEATE
     Dosage: UNK
     Route: 042
  82. FILGRASTIM [Suspect]
     Active Substance: FILGRASTIM
     Indication: Non-Hodgkin^s lymphoma
     Dosage: UNK
     Route: 058
     Dates: start: 20190523, end: 20200117
  83. FILGRASTIM [Suspect]
     Active Substance: FILGRASTIM
     Indication: Anaemia
  84. FILGRASTIM [Suspect]
     Active Substance: FILGRASTIM
     Indication: Hypertension
  85. FILGRASTIM [Suspect]
     Active Substance: FILGRASTIM
     Indication: Diffuse large B-cell lymphoma
  86. FILGRASTIM [Suspect]
     Active Substance: FILGRASTIM
     Indication: Leukopenia
  87. VALTREX [Suspect]
     Active Substance: VALACYCLOVIR HYDROCHLORIDE
     Indication: Non-Hodgkin^s lymphoma
     Dosage: 500 MILLIGRAM
     Route: 048
     Dates: start: 20190513, end: 20190516
  88. VALTREX [Suspect]
     Active Substance: VALACYCLOVIR HYDROCHLORIDE
     Indication: Anaemia
     Dosage: 500 GRAM
     Route: 048
     Dates: start: 20200108, end: 20200113
  89. VALTREX [Suspect]
     Active Substance: VALACYCLOVIR HYDROCHLORIDE
     Indication: Diffuse large B-cell lymphoma
     Dosage: UNK
     Route: 042
  90. VALTREX [Suspect]
     Active Substance: VALACYCLOVIR HYDROCHLORIDE
     Indication: Leukopenia
     Dosage: UNK
     Route: 058
  91. VALTREX [Suspect]
     Active Substance: VALACYCLOVIR HYDROCHLORIDE
     Indication: Hypertension
  92. CHLORPHENIRAMINE MALEATE [Suspect]
     Active Substance: CHLORPHENIRAMINE MALEATE
     Indication: Leukopenia
     Dosage: UNK
     Route: 048
     Dates: start: 20200110, end: 20200112
  93. CHLORPHENIRAMINE MALEATE [Suspect]
     Active Substance: CHLORPHENIRAMINE MALEATE
     Indication: Anaemia
  94. CHLORPHENIRAMINE MALEATE [Suspect]
     Active Substance: CHLORPHENIRAMINE MALEATE
     Indication: Hypertension
  95. CHLORPHENIRAMINE MALEATE [Suspect]
     Active Substance: CHLORPHENIRAMINE MALEATE
     Indication: Diffuse large B-cell lymphoma
  96. CHLORPHENIRAMINE MALEATE [Suspect]
     Active Substance: CHLORPHENIRAMINE MALEATE
     Indication: Non-Hodgkin^s lymphoma
  97. RITUXAN HYCELA [Suspect]
     Active Substance: HYALURONIDASE (HUMAN RECOMBINANT)\RITUXIMAB
     Indication: Diffuse large B-cell lymphoma
     Dosage: UNK
     Route: 058
     Dates: start: 20190513, end: 20190625
  98. METHYLPREDNISOLONE [Suspect]
     Active Substance: METHYLPREDNISOLONE
     Indication: Diffuse large B-cell lymphoma
     Route: 065
  99. VALACYCLOVIR HYDROCHLORIDE [Suspect]
     Active Substance: VALACYCLOVIR HYDROCHLORIDE
     Indication: Product used for unknown indication
     Dosage: UNK
     Route: 065
  100. DAPTOMYCIN [Suspect]
     Active Substance: DAPTOMYCIN
     Indication: Product used for unknown indication
     Dosage: UNK
     Route: 065
  101. ERYTHROPOIETIN [Suspect]
     Active Substance: ERYTHROPOIETIN
     Indication: Hypertension
     Dosage: UNK
     Route: 065
  102. ERYTHROPOIETIN [Suspect]
     Active Substance: ERYTHROPOIETIN
     Indication: Diffuse large B-cell lymphoma
  103. ERYTHROPOIETIN [Suspect]
     Active Substance: ERYTHROPOIETIN
     Indication: Anaemia
  104. ERYTHROPOIETIN [Suspect]
     Active Substance: ERYTHROPOIETIN
     Indication: Leukopenia
  105. ERYTHROPOIETIN [Suspect]
     Active Substance: ERYTHROPOIETIN
     Indication: Non-Hodgkin^s lymphoma
  106. DOXORUBICIN HYDROCHLORIDE [Suspect]
     Active Substance: DOXORUBICIN HYDROCHLORIDE
     Indication: Diffuse large B-cell lymphoma
     Route: 065
  107. DOXORUBICIN HYDROCHLORIDE [Suspect]
     Active Substance: DOXORUBICIN HYDROCHLORIDE
     Indication: Non-Hodgkin^s lymphoma
  108. DOXORUBICIN HYDROCHLORIDE [Suspect]
     Active Substance: DOXORUBICIN HYDROCHLORIDE
     Indication: Leukopenia
  109. DOXORUBICIN HYDROCHLORIDE [Suspect]
     Active Substance: DOXORUBICIN HYDROCHLORIDE
     Indication: Anaemia
  110. DOXORUBICIN HYDROCHLORIDE [Suspect]
     Active Substance: DOXORUBICIN HYDROCHLORIDE
     Indication: Hypertension
  111. CANCIDAS [Suspect]
     Active Substance: CASPOFUNGIN ACETATE
     Indication: Non-Hodgkin^s lymphoma
     Dosage: 50 MILLIGRAM
     Route: 042
     Dates: start: 20200105, end: 20200113
  112. CANCIDAS [Suspect]
     Active Substance: CASPOFUNGIN ACETATE
     Indication: Diffuse large B-cell lymphoma
     Dosage: UNK
     Route: 065
  113. CANCIDAS [Suspect]
     Active Substance: CASPOFUNGIN ACETATE
     Indication: Hypertension
  114. CANCIDAS [Suspect]
     Active Substance: CASPOFUNGIN ACETATE
     Indication: Leukopenia
  115. CANCIDAS [Suspect]
     Active Substance: CASPOFUNGIN ACETATE
     Indication: Anaemia
  116. CYCLOPHOSPHAMIDE [Suspect]
     Active Substance: CYCLOPHOSPHAMIDE
     Indication: Diffuse large B-cell lymphoma
     Route: 065
  117. CYCLOPHOSPHAMIDE [Suspect]
     Active Substance: CYCLOPHOSPHAMIDE
     Indication: Anaemia
  118. CYCLOPHOSPHAMIDE [Suspect]
     Active Substance: CYCLOPHOSPHAMIDE
     Indication: Hypertension
  119. CYCLOPHOSPHAMIDE [Suspect]
     Active Substance: CYCLOPHOSPHAMIDE
     Indication: Non-Hodgkin^s lymphoma
  120. CYCLOPHOSPHAMIDE [Suspect]
     Active Substance: CYCLOPHOSPHAMIDE
     Indication: Leukopenia
  121. FILGRASTIM [Suspect]
     Active Substance: FILGRASTIM
     Indication: Leukopenia
     Dosage: UNK
     Route: 065
     Dates: start: 20190523, end: 20200117

REACTIONS (3)
  - Diffuse large B-cell lymphoma refractory [Unknown]
  - Disease progression [Unknown]
  - Off label use [Unknown]

NARRATIVE: CASE EVENT DATE: 20191223
